FAERS Safety Report 5897351-0 (Version None)
Quarter: 2008Q3

REPORT INFORMATION
  Report Type: 
  Country: None (occurrence: None)
  Receive Date: 20080925
  Receipt Date: 20080501
  Transmission Date: 20090109
  Serious: No
  Sender: FDA-Public Use
  Company Number: A0725840A

PATIENT
  Sex: Male

DRUGS (2)
  1. EPZICOM [Suspect]
     Route: 048
  2. MULTIPLE MEDICATIONS [Concomitant]

REACTIONS (1)
  - NAUSEA [None]
